FAERS Safety Report 24074155 (Version 1)
Quarter: 2024Q3

REPORT INFORMATION
  Report Type: Spontaneous
  Country: JP (occurrence: JP)
  Receive Date: 20240710
  Receipt Date: 20240710
  Transmission Date: 20241016
  Serious: No
  Sender: PIERRE FABRE MEDICAMENT
  Company Number: JP-maruho-EVD202400747PFM

PATIENT
  Sex: Female

DRUGS (6)
  1. PROPRANOLOL HYDROCHLORIDE [Suspect]
     Active Substance: PROPRANOLOL HYDROCHLORIDE
     Indication: Infantile haemangioma
     Dosage: 2.625 MG, BID (2/DAY)
     Route: 048
     Dates: start: 20231211
  2. PROPRANOLOL HYDROCHLORIDE [Suspect]
     Active Substance: PROPRANOLOL HYDROCHLORIDE
     Dosage: 5.25 MG, BID (2/DAY)
     Route: 048
     Dates: start: 20231213
  3. PROPRANOLOL HYDROCHLORIDE [Suspect]
     Active Substance: PROPRANOLOL HYDROCHLORIDE
     Dosage: 7.875 MG, BID (2/DAY)
     Route: 048
     Dates: start: 20231215
  4. PROPRANOLOL HYDROCHLORIDE [Suspect]
     Active Substance: PROPRANOLOL HYDROCHLORIDE
     Dosage: 9.375 MG, BID (2/DAY)
     Route: 048
     Dates: start: 20240122
  5. PROPRANOLOL HYDROCHLORIDE [Suspect]
     Active Substance: PROPRANOLOL HYDROCHLORIDE
     Dosage: 9.75 MG, BID (2/DAY)
     Route: 048
     Dates: start: 20240219
  6. PROPRANOLOL HYDROCHLORIDE [Suspect]
     Active Substance: PROPRANOLOL HYDROCHLORIDE
     Dosage: 10.5 MG, BID (2/DAY)
     Route: 048
     Dates: start: 20240318

REACTIONS (1)
  - Neutrophil count decreased [Unknown]
